FAERS Safety Report 5895160-X (Version None)
Quarter: 2008Q3

REPORT INFORMATION
  Report Type: 
  Country: None (occurrence: None)
  Receive Date: 20080924
  Receipt Date: 20080911
  Transmission Date: 20090109
  Serious: Yes (Other)
  Sender: FDA-Public Use
  Company Number: US-PFIZER INC-2008077983

PATIENT
  Sex: Male
  Weight: 112 kg

DRUGS (17)
  1. CHANTIX [Suspect]
     Indication: SMOKING CESSATION THERAPY
     Dates: start: 20080902
  2. ACETYLSALICYLIC ACID SRT [Concomitant]
  3. COREG [Concomitant]
  4. FOLIC ACID [Concomitant]
  5. GLYBURIDE [Concomitant]
  6. HYDRALAZINE HCL [Concomitant]
  7. ISOSORBIDE [Concomitant]
  8. LASIX [Concomitant]
  9. METFORMIN HCL [Concomitant]
  10. PAROXETINE HCL [Concomitant]
  11. PLAVIX [Concomitant]
  12. POTASSIUM CHLORIDE [Concomitant]
  13. PREDNISONE [Concomitant]
  14. PROBENECID [Concomitant]
  15. ZOCOR [Concomitant]
  16. ALBUTEROL [Concomitant]
  17. LORTAB [Concomitant]

REACTIONS (2)
  - DEPRESSION [None]
  - SOMNAMBULISM [None]
